FAERS Safety Report 6040198-5 (Version None)
Quarter: 2009Q1

REPORT INFORMATION
  Report Type: 
  Country: None (occurrence: None)
  Receive Date: 20090116
  Receipt Date: 20080110
  Transmission Date: 20090719
  Serious: No
  Sender: FDA-Public Use
  Company Number: US-BRISTOL-MYERS SQUIBB COMPANY-14037840

PATIENT
  Age: 31 Year
  Sex: Female
  Weight: 59 kg

DRUGS (4)
  1. ABILIFY [Suspect]
     Indication: BIPOLAR DISORDER
     Route: 048
     Dates: start: 20071205
  2. BUSPAR TABS 30 MG [Concomitant]
     Route: 048
     Dates: start: 20070301
  3. DEPLIN [Concomitant]
  4. VISTARIL [Concomitant]

REACTIONS (1)
  - NERVOUSNESS [None]
